FAERS Safety Report 4860173-3 (Version None)
Quarter: 2005Q4

REPORT INFORMATION
  Report Type: 
  Country: None (occurrence: None)
  Receive Date: 20051219
  Receipt Date: 20051209
  Transmission Date: 20060501
  Serious: Yes (Other)
  Sender: FDA-Public Use
  Company Number: CA-BRISTOL-MYERS SQUIBB COMPANY-13217914

PATIENT
  Age: 76 Year
  Sex: Female

DRUGS (7)
  1. TEQUIN [Suspect]
     Route: 048
  2. ASPIRIN [Concomitant]
  3. CIMETIDINE [Concomitant]
  4. DILTIAZEM HCL [Concomitant]
  5. HYDROCHLOROTHIAZIDE [Concomitant]
  6. INHIBACE [Concomitant]
  7. NITRO-DUR [Concomitant]

REACTIONS (3)
  - HYPERGLYCAEMIA [None]
  - POLYDIPSIA [None]
  - POLYURIA [None]
